FAERS Safety Report 5487739-4 (Version None)
Quarter: 2007Q4

REPORT INFORMATION
  Report Type: 
  Country: None (occurrence: None)
  Receive Date: 20071017
  Receipt Date: 20071009
  Transmission Date: 20080405
  Serious: Yes (Death)
  Sender: FDA-Public Use
  Company Number: PHBS2007JP16047

PATIENT
  Age: 46 Year
  Sex: Male
  Weight: 70 kg

DRUGS (2)
  1. RITALIN [Suspect]
     Indication: DEPRESSION
     Dosage: 60 MG/DAY
     Dates: end: 20070921
  2. AGENTS FOR HYPERLIPIDEMIAS [Concomitant]
     Indication: HYPERLIPIDAEMIA
     Dates: end: 20070921

REACTIONS (15)
  - ALANINE AMINOTRANSFERASE INCREASED [None]
  - ASPARTATE AMINOTRANSFERASE INCREASED [None]
  - BLOOD CREATINE PHOSPHOKINASE INCREASED [None]
  - BLOOD CREATININE INCREASED [None]
  - BLOOD GLUCOSE INCREASED [None]
  - BLOOD LACTATE DEHYDROGENASE INCREASED [None]
  - BLOOD POTASSIUM INCREASED [None]
  - BLOOD SODIUM INCREASED [None]
  - CARDIAC MASSAGE [None]
  - CARDIO-RESPIRATORY ARREST [None]
  - CONVULSION [None]
  - ELECTROCARDIOGRAM ABNORMAL [None]
  - INTUBATION [None]
  - LOSS OF CONSCIOUSNESS [None]
  - SUDDEN DEATH [None]
